FAERS Safety Report 12607704 (Version 1)
Quarter: 2016Q3

REPORT INFORMATION
  Report Type: Spontaneous
  Country: US (occurrence: US)
  Receive Date: 20160729
  Receipt Date: 20160729
  Transmission Date: 20161109
  Serious: Yes (Disabling)
  Sender: FDA-Public Use
  Company Number: US-BAUSCH-BL-2016-017720

PATIENT

DRUGS (2)
  1. WELLBUTRIN XL [Suspect]
     Active Substance: BUPROPION HYDROCHLORIDE
     Indication: MAJOR DEPRESSION
     Route: 065
  2. BUPROPION. [Suspect]
     Active Substance: BUPROPION
     Indication: MAJOR DEPRESSION
     Route: 065

REACTIONS (2)
  - Drug ineffective [Unknown]
  - Adverse drug reaction [Unknown]
